FAERS Safety Report 10161474 (Version 2)
Quarter: 2014Q2

REPORT INFORMATION
  Report Type: Spontaneous
  Country: US (occurrence: US)
  Receive Date: 20140509
  Receipt Date: 20140509
  Transmission Date: 20141212
  Serious: No
  Sender: FDA-Public Use
  Company Number: US-TEVA-417687USA

PATIENT
  Age: 18 Year
  Sex: Male

DRUGS (3)
  1. CLARAVIS [Suspect]
     Dosage: 40 MILLIGRAM DAILY; IN THE MORNING
     Route: 048
     Dates: start: 20130311
  2. CLARAVIS [Suspect]
     Dosage: 20 MILLIGRAM DAILY; AT NIGHT
     Route: 048
     Dates: start: 20130311
  3. IBUPROFEN [Concomitant]

REACTIONS (1)
  - Liver function test abnormal [Recovered/Resolved with Sequelae]
